FAERS Safety Report 10514327 (Version 2)
Quarter: 2014Q4

REPORT INFORMATION
  Report Type: Report from Study
  Country: TR (occurrence: TR)
  Receive Date: 20141013
  Receipt Date: 20141028
  Transmission Date: 20150528
  Serious: Yes (Other)
  Sender: FDA-Public Use
  Company Number: TR-BRISTOL-MYERS SQUIBB COMPANY-21462700

PATIENT
  Age: 53 Year
  Sex: Female

DRUGS (4)
  1. EXENATIDE [Suspect]
     Active Substance: EXENATIDE
     Indication: TYPE 2 DIABETES MELLITUS
     Dosage: ONGOING  10 MCG DAILY TOTAL  24SEP14-21OCT14=5MCG BID  22OCT14=10MCG
     Route: 058
     Dates: start: 20140924
  2. SYMBICORT [Concomitant]
     Active Substance: BUDESONIDE\FORMOTEROL FUMARATE DIHYDRATE
  3. DIAFORMIN [Concomitant]
     Active Substance: METFORMIN HYDROCHLORIDE
  4. ATACAND PLUS [Concomitant]
     Active Substance: CANDESARTAN CILEXETIL\HYDROCHLOROTHIAZIDE

REACTIONS (2)
  - Paraesthesia [Recovered/Resolved]
  - Paraesthesia oral [Recovered/Resolved]

NARRATIVE: CASE EVENT DATE: 20141002
